FAERS Safety Report 6739666-X (Version None)
Quarter: 2010Q2

REPORT INFORMATION
  Report Type: 
  Country: None (occurrence: None)
  Receive Date: 20100525
  Receipt Date: 20100421
  Transmission Date: 20101027
  Serious: Yes (Other)
  Sender: FDA-Public Use
  Company Number: US-AMGEN-QUU407793

PATIENT
  Sex: Male
  Weight: 95.3 kg

DRUGS (2)
  1. NPLATE [Suspect]
     Indication: IDIOPATHIC THROMBOCYTOPENIC PURPURA
     Dates: start: 20090925, end: 20091113
  2. CORTICOSTEROIDS [Concomitant]
     Dates: start: 19750101, end: 20091001

REACTIONS (1)
  - DRUG INEFFECTIVE [None]
